FAERS Safety Report 25140324 (Version 1)
Quarter: 2025Q1

REPORT INFORMATION
  Report Type: Spontaneous
  Country: GB (occurrence: GB)
  Receive Date: 20250331
  Receipt Date: 20250331
  Transmission Date: 20250409
  Serious: Yes (Death, Other)
  Sender: ADVANZ PHARMA
  Company Number: GB-PHARMVIT-4556-3352-ER25-RN1376

PATIENT

DRUGS (1)
  1. PREDNISOLONE [Interacting]
     Active Substance: PREDNISOLONE
     Route: 048

REACTIONS (4)
  - Vaccine interaction [Not Recovered/Not Resolved]
  - Vaccination failure [Not Recovered/Not Resolved]
  - COVID-19 pneumonia [Fatal]
  - Immunosuppression [Not Recovered/Not Resolved]
